FAERS Safety Report 8809694 (Version 1)
Quarter: 2012Q4

REPORT INFORMATION
  Report Type: 
  Country: US (occurrence: US)
  Receive Date: 20120926
  Receipt Date: 20120926
  Transmission Date: 20130627
  Serious: Yes (Other)
  Sender: FDA-Public Use
  Company Number: US-ROCHE-1129486

PATIENT
  Age: 45 Year
  Sex: Female

DRUGS (15)
  1. AVASTIN [Suspect]
     Indication: BREAST CANCER FEMALE
     Route: 065
     Dates: start: 20060327
  2. AVASTIN [Suspect]
     Route: 065
     Dates: start: 20060410
  3. AVASTIN [Suspect]
     Route: 065
     Dates: start: 20060424
  4. AVASTIN [Suspect]
     Route: 065
     Dates: start: 20060508
  5. AVASTIN [Suspect]
     Route: 065
     Dates: start: 20060703
  6. AVASTIN [Suspect]
     Route: 065
     Dates: start: 20060717
  7. AVASTIN [Suspect]
     Route: 065
     Dates: start: 20060801
  8. AVASTIN [Suspect]
     Route: 065
     Dates: start: 20060814
  9. HERCEPTIN [Suspect]
     Indication: BREAST CANCER FEMALE
     Route: 065
  10. XELODA [Suspect]
     Indication: BREAST CANCER FEMALE
     Route: 065
  11. CARBOPLATIN [Concomitant]
  12. GEMCITABINE [Concomitant]
  13. ABRAXANE [Concomitant]
  14. LAPATINIB [Concomitant]
  15. ZOMETA [Concomitant]

REACTIONS (8)
  - Disease progression [Unknown]
  - Nausea [Unknown]
  - Vomiting [Unknown]
  - Diarrhoea [Unknown]
  - Musculoskeletal chest pain [Unknown]
  - Productive cough [Unknown]
  - Bone marrow failure [Unknown]
  - Pain [Unknown]
